FAERS Safety Report 5760884-1 (Version None)
Quarter: 2008Q2

REPORT INFORMATION
  Report Type: 
  Country: None (occurrence: None)
  Receive Date: 20080606
  Receipt Date: 20070621
  Transmission Date: 20081010
  Serious: No
  Sender: FDA-Public Use
  Company Number: US-ASTRAZENECA-2007UW14976

PATIENT
  Age: 75 Year
  Sex: Female

DRUGS (18)
  1. PRILOSEC [Suspect]
     Indication: DYSPEPSIA
     Route: 048
  2. PRILOSEC [Suspect]
     Route: 048
  3. LEXAPRO [Concomitant]
  4. BUSPAR [Concomitant]
  5. XANAX [Concomitant]
  6. DARVOCET [Concomitant]
  7. DITROPAN [Concomitant]
  8. CARAFATE [Concomitant]
  9. PULMICORT [Concomitant]
     Route: 055
  10. BONIVA [Concomitant]
  11. SPIRIVA [Concomitant]
  12. SINGULAIR [Concomitant]
  13. SEROQUEL [Concomitant]
     Route: 048
  14. PLAVIX [Concomitant]
  15. TYLENOL W/ CODEINE [Concomitant]
  16. AMBIEN [Concomitant]
  17. LACTOSE ENZYME [Concomitant]
  18. GLUCOSAMINE [Concomitant]

REACTIONS (1)
  - DYSPEPSIA [None]
